FAERS Safety Report 10644730 (Version 3)
Quarter: 2015Q1

REPORT INFORMATION
  Report Type: Spontaneous
  Country: US (occurrence: US)
  Receive Date: 20141211
  Receipt Date: 20150122
  Transmission Date: 20150720
  Serious: Yes (Hospitalization, Other)
  Sender: FDA-Public Use
  Company Number: US-AMGEN-USASP2014095135

PATIENT
  Age: 59 Year
  Sex: Female

DRUGS (1)
  1. ENBREL [Suspect]
     Active Substance: ETANERCEPT
     Indication: RHEUMATOID ARTHRITIS
     Dosage: 50 MG, QWK
     Route: 065
     Dates: start: 2009

REACTIONS (15)
  - Finger deformity [Recovered/Resolved]
  - Rheumatoid arthritis [Recovered/Resolved]
  - Musculoskeletal disorder [Not Recovered/Not Resolved]
  - Activities of daily living impaired [Not Recovered/Not Resolved]
  - Abasia [Recovered/Resolved]
  - Joint lock [Recovered/Resolved]
  - Weight abnormal [Unknown]
  - Wrong technique in drug usage process [Recovered/Resolved]
  - Osteoarthritis [Unknown]
  - Morton^s neuralgia [Recovered/Resolved]
  - Tooth extraction [Recovered/Resolved]
  - Pain in extremity [Unknown]
  - Malaise [Unknown]
  - Limb deformity [Unknown]
  - Panic attack [Not Recovered/Not Resolved]

NARRATIVE: CASE EVENT DATE: 2009
